FAERS Safety Report 10066968 (Version 2)
Quarter: 2014Q2

REPORT INFORMATION
  Report Type: Spontaneous
  Country: JP (occurrence: JP)
  Receive Date: 20140409
  Receipt Date: 20140428
  Transmission Date: 20141212
  Serious: Yes (Death, Hospitalization)
  Sender: FDA-Public Use
  Company Number: JP-PFIZER INC-2014096542

PATIENT
  Age: 65 Year
  Sex: Female

DRUGS (12)
  1. ZOSYN [Suspect]
     Dosage: 4.5 G, 3X/DAY
     Route: 041
     Dates: start: 20130101, end: 20130104
  2. HEPARIN SODIUM [Concomitant]
     Indication: ANTICOAGULANT THERAPY
     Dosage: 10000 IU, DAILY
     Route: 042
     Dates: start: 20121227, end: 20130104
  3. ONOACT [Concomitant]
     Indication: ARRHYTHMIA
     Dosage: 100 MG, DAILY
     Dates: start: 20121228, end: 20130104
  4. LASIX [Concomitant]
     Indication: DIURETIC THERAPY
     Dosage: 10 MG, DAILY
     Route: 042
     Dates: start: 20121229, end: 20121230
  5. GASTER [Concomitant]
     Dosage: 20 MG, DAILY
     Route: 041
     Dates: start: 20121229, end: 20130104
  6. HUMULIN R [Concomitant]
     Dosage: 100 IU, DAILY
     Route: 042
     Dates: start: 20121229, end: 20130104
  7. BROTIZOLAM [Concomitant]
     Indication: SEDATION
     Dosage: 0.25 MG, DAILY
     Dates: start: 20121230, end: 20140103
  8. INTRALIPOS [Concomitant]
     Indication: NUTRITIONAL SUPPLEMENTATION
     Dosage: 100 ML, DAILY
     Route: 041
     Dates: start: 20121231, end: 20130103
  9. MUCOSAL [Concomitant]
     Dosage: 45 MG, DAILY
     Dates: start: 20121231, end: 20140104
  10. ALDACTONE-A [Concomitant]
     Indication: DIURETIC THERAPY
     Dosage: 25 MG, DAILY
     Dates: start: 20121231, end: 20140103
  11. ALDACTONE-A [Concomitant]
     Indication: ELECTROLYTE SUBSTITUTION THERAPY
  12. HANP [Concomitant]
     Dosage: 2000 UG, DAILY
     Route: 042
     Dates: start: 20130102, end: 20130104

REACTIONS (4)
  - Endocarditis [Fatal]
  - Cerebral infarction [Fatal]
  - Cerebral haemorrhage [Fatal]
  - Stevens-Johnson syndrome [Fatal]
